FAERS Safety Report 10383683 (Version 1)
Quarter: 2014Q1

REPORT INFORMATION
  Report Type: Spontaneous
  Country: US (occurrence: None)
  Receive Date: 20140306
  Receipt Date: 20140306
  Transmission Date: 20141002
  Serious: Yes (Other)
  Sender: FDA-Public Use
  Company Number: 163-21880-13081460

PATIENT
  Age: 51 Year
  Sex: Female

DRUGS (6)
  1. REVLIMID (LENALIDOMIDE) (10 MILLIGRAM, CAPSULES) [Suspect]
     Indication: PLASMA CELL MYELOMA
     Route: 048
     Dates: start: 201203
  2. SIMVASTATIN [Concomitant]
  3. CALCIUM [Concomitant]
  4. VITAMIN D (ERGOCALCIFEROL) [Concomitant]
  5. VITAMIN B12 (CYANOCOBALAMIN) [Concomitant]
  6. VITAMIN B6 (PYRIDOXINE HYDROCHLORIDE) [Concomitant]

REACTIONS (1)
  - Neutrophil count decreased [None]
